FAERS Safety Report 8992703 (Version 1)
Quarter: 2013Q1

REPORT INFORMATION
  Report Type: Report from Study
  Country: CA (occurrence: CA)
  Receive Date: 20130101
  Receipt Date: 20130101
  Transmission Date: 20140127
  Serious: Yes (Death)
  Sender: FDA-Public Use
  Company Number: CA-ROCHE-1176034

PATIENT
  Sex: Male
  Weight: 102.5 kg

DRUGS (5)
  1. BEVACIZUMAB [Suspect]
     Indication: GLIOBLASTOMA
     Route: 042
     Dates: start: 20121211, end: 20121211
  2. MICARDIS [Concomitant]
  3. METFORMIN [Concomitant]
  4. DECADRON [Concomitant]
  5. DIAMICRON [Concomitant]

REACTIONS (1)
  - Death [Fatal]
